FAERS Safety Report 8823727 (Version 1)
Quarter: 2012Q4

REPORT INFORMATION
  Report Type: 
  Country: FR (occurrence: FR)
  Receive Date: 20121003
  Receipt Date: 20121003
  Transmission Date: 20130627
  Serious: Yes (Other)
  Sender: FDA-Public Use
  Company Number: FR-ABBOTT-12P-056-0988378-00

PATIENT
  Sex: Female

DRUGS (9)
  1. NORVIR [Suspect]
     Indication: HIV INFECTION
     Route: 048
     Dates: start: 20120705, end: 20120825
  2. DARUNAVIR [Suspect]
     Indication: HIV INFECTION
     Route: 048
     Dates: start: 20120705, end: 20120825
  3. TRUVADA [Concomitant]
     Indication: HIV INFECTION
  4. ETRAVIRINE [Concomitant]
     Indication: HIV INFECTION
     Dates: start: 20120620
  5. ETRAVIRINE [Concomitant]
     Dates: start: 20061024, end: 200808
  6. ATAZANAVIR [Concomitant]
     Indication: HIV INFECTION
     Dates: start: 20120620
  7. ATAZANAVIR [Concomitant]
     Dates: start: 20061024, end: 200808
  8. ATAZANAVIR [Concomitant]
     Dates: start: 20120705, end: 20120726
  9. DIDANOSINE [Concomitant]
     Indication: HIV INFECTION
     Dates: start: 20120726, end: 20120825

REACTIONS (3)
  - Irritability [Recovered/Resolved]
  - Insomnia [Recovered/Resolved]
  - Depression [Recovered/Resolved]
